FAERS Safety Report 16687560 (Version 1)
Quarter: 2019Q3

REPORT INFORMATION
  Report Type: Other
  Country: DE (occurrence: DE)
  Receive Date: 20190809
  Receipt Date: 20190809
  Transmission Date: 20191004
  Serious: Yes (Other)
  Sender: FDA-Public Use
  Company Number: DE-MACLEODS PHARMACEUTICALS US LTD-MAC2018017327

PATIENT

DRUGS (7)
  1. VALSARTAN. [Suspect]
     Active Substance: VALSARTAN
     Indication: BLOOD PRESSURE ABNORMAL
     Dosage: 80 MILLIGRAM, QD, CAPSULE
     Route: 048
  2. UTROGESTAN [Suspect]
     Active Substance: PROGESTERONE
     Indication: HORMONE REPLACEMENT THERAPY
     Dosage: 1 DOSAGE FORM, QD, 1 CAPSULE
     Route: 048
     Dates: start: 201612, end: 201703
  3. GYNOKADIN [Suspect]
     Active Substance: ESTRADIOL
     Indication: HORMONE REPLACEMENT THERAPY
     Dosage: 1 DOSAGE FORM, QD, GEL, 1 PUFF DAILY (UNKNOWN, 1 D)
     Route: 062
     Dates: start: 201508, end: 201610
  4. LEVOTHYROXINE SODIUM. [Concomitant]
     Active Substance: LEVOTHYROXINE SODIUM
     Indication: PRODUCT USED FOR UNKNOWN INDICATION
     Dosage: UNK
     Route: 065
  5. UTROGESTAN [Suspect]
     Active Substance: PROGESTERONE
     Dosage: 100 MILLIGRAM, QD, CAPSULE, 100 MG, QD, 1 IN 1 D
     Route: 048
     Dates: start: 201508, end: 201610
  6. GYNOKADIN [Suspect]
     Active Substance: ESTRADIOL
     Dosage: 1 DOSAGE FORM, QD, GEL, 1 PUFF DAILY (UNKNOWN, 1 D)
     Route: 062
     Dates: start: 201612, end: 201703
  7. SERTRALINE HYDROCHLORIDE. [Concomitant]
     Active Substance: SERTRALINE HYDROCHLORIDE
     Indication: PRODUCT USED FOR UNKNOWN INDICATION
     Dosage: UNK
     Route: 065

REACTIONS (4)
  - Ophthalmic vein thrombosis [Unknown]
  - Product odour abnormal [Unknown]
  - Product taste abnormal [Unknown]
  - Retinal vein occlusion [Recovered/Resolved]

NARRATIVE: CASE EVENT DATE: 201704
